FAERS Safety Report 25086826 (Version 2)
Quarter: 2025Q2

REPORT INFORMATION
  Report Type: Report from Study
  Country: US (occurrence: US)
  Receive Date: 20250318
  Receipt Date: 20250401
  Transmission Date: 20250716
  Serious: Yes (Hospitalization)
  Sender: ABBVIE
  Company Number: US-ABBVIE-6174809

PATIENT
  Sex: Female

DRUGS (1)
  1. RINVOQ [Suspect]
     Active Substance: UPADACITINIB
     Indication: Rheumatoid arthritis
     Route: 048
     Dates: start: 20240901

REACTIONS (5)
  - Sepsis [Recovered/Resolved]
  - Fluid retention [Unknown]
  - Urinary tract infection [Unknown]
  - Urticaria [Unknown]
  - Blood pressure decreased [Unknown]
